FAERS Safety Report 12054922 (Version 1)
Quarter: 2016Q1

REPORT INFORMATION
  Report Type: Spontaneous
  Country: US (occurrence: US)
  Receive Date: 20160209
  Receipt Date: 20160209
  Transmission Date: 20160526
  Serious: No
  Sender: FDA-Public Use
  Company Number: US-ABBVIE-15P-163-1460366-00

PATIENT

DRUGS (1)
  1. HUMIRA [Suspect]
     Active Substance: ADALIMUMAB
     Indication: CROHN^S DISEASE
     Route: 065

REACTIONS (16)
  - Frequent bowel movements [Unknown]
  - Scar [Unknown]
  - Mucous stools [Unknown]
  - Intestinal stenosis [Unknown]
  - Rash [Unknown]
  - Pain [Unknown]
  - Haematochezia [Unknown]
  - Painful defaecation [Unknown]
  - Activities of daily living impaired [Unknown]
  - Vomiting [Unknown]
  - Arthralgia [Unknown]
  - Abdominal pain [Unknown]
  - Back pain [Unknown]
  - Visual impairment [Unknown]
  - Drug ineffective [Unknown]
  - Large intestinal stenosis [Unknown]
